FAERS Safety Report 23600753 (Version 1)
Quarter: 2024Q1

REPORT INFORMATION
  Report Type: Spontaneous
  Country: EU (occurrence: EU)
  Receive Date: 20240306
  Receipt Date: 20240306
  Transmission Date: 20240410
  Serious: Yes (Other)
  Sender: FDA-Public Use
  Company Number: EU-SEPTODONT-2024018421

PATIENT

DRUGS (3)
  1. ARTICAINE HYDROCHLORIDE\EPINEPHRINE HYDROCHLORIDE [Suspect]
     Active Substance: ARTICAINE HYDROCHLORIDE\EPINEPHRINE HYDROCHLORIDE
     Indication: Dental care
     Route: 065
     Dates: start: 20240228, end: 20240228
  2. Local data (GDPR) [Concomitant]
     Dates: start: 20240228, end: 20240228
  3. Local data (GDPR) [Concomitant]
     Dates: start: 20240227, end: 20240227

REACTIONS (3)
  - Loss of consciousness [Recovered/Resolved]
  - Dizziness [Unknown]
  - Cold sweat [Unknown]

NARRATIVE: CASE EVENT DATE: 20240228
